FAERS Safety Report 6469992-3 (Version None)
Quarter: 2009Q4

REPORT INFORMATION
  Report Type: 
  Country: None (occurrence: None)
  Receive Date: 20091201
  Receipt Date: 20091117
  Transmission Date: 20100525
  Serious: Yes (Other)
  Sender: FDA-Public Use
  Company Number: SPV1-2009-02365

PATIENT
  Age: 3 Year
  Sex: Male

DRUGS (3)
  1. ELAPRASE [Suspect]
     Indication: MUCOPOLYSACCHARIDOSIS II
     Dosage: 6 MG, 1X/WEEK, IV DRIP; 12 MG, OTHER, IV DRIP
     Route: 041
     Dates: start: 20090301
  2. HYDROXYZINE [Concomitant]
  3. ACETAMINOPHEN [Concomitant]

REACTIONS (12)
  - CHILLS [None]
  - COUGH [None]
  - EYE OEDEMA [None]
  - INFUSION RELATED REACTION [None]
  - PALLOR [None]
  - PERIPHERAL CIRCULATORY FAILURE [None]
  - PYREXIA [None]
  - RASH MACULAR [None]
  - RESPIRATORY DISTRESS [None]
  - TACHYCARDIA [None]
  - TREMOR [None]
  - URTICARIA [None]
